FAERS Safety Report 24428265 (Version 1)
Quarter: 2024Q4

REPORT INFORMATION
  Report Type: Spontaneous
  Country: US (occurrence: US)
  Receive Date: 20241011
  Receipt Date: 20241011
  Transmission Date: 20250114
  Serious: No
  Sender: BAYER
  Company Number: US-BAYER-2024A144976

PATIENT
  Age: 21 Year
  Sex: Female

DRUGS (3)
  1. KYLEENA [Suspect]
     Active Substance: LEVONORGESTREL
     Indication: Intrauterine contraception
     Dosage: 17.5?G/DAY
     Route: 015
     Dates: start: 202407
  2. KYLEENA [Suspect]
     Active Substance: LEVONORGESTREL
     Indication: Menstruation irregular
  3. KYLEENA [Suspect]
     Active Substance: LEVONORGESTREL
     Indication: Premenstrual syndrome

REACTIONS (1)
  - Device dislocation [Not Recovered/Not Resolved]
